FAERS Safety Report 11773302 (Version 2)
Quarter: 2015Q4

REPORT INFORMATION
  Report Type: Spontaneous
  Country: US (occurrence: US)
  Receive Date: 20151124
  Receipt Date: 20151203
  Transmission Date: 20160304
  Serious: Yes (Other)
  Sender: FDA-Public Use
  Company Number: US-BAYER-2015-465161

PATIENT
  Age: 56 Year
  Sex: Female
  Weight: 82.99 kg

DRUGS (2)
  1. MILK OF MAGNESIA [Suspect]
     Active Substance: MAGNESIUM HYDROXIDE
     Indication: CONSTIPATION
     Dosage: 1 CAPFULL, EVERY 3-4 DAYS
     Route: 048
     Dates: start: 2012
  2. GLIPIZIDE. [Concomitant]
     Active Substance: GLIPIZIDE

REACTIONS (3)
  - Nephropathy [Not Recovered/Not Resolved]
  - Circumstance or information capable of leading to medication error [None]
  - Product use issue [None]

NARRATIVE: CASE EVENT DATE: 2012
